FAERS Safety Report 5392717-X (Version None)
Quarter: 2007Q3

REPORT INFORMATION
  Report Type: 
  Country: None (occurrence: None)
  Receive Date: 20070720
  Receipt Date: 20070710
  Transmission Date: 20080115
  Serious: Yes (Other)
  Sender: FDA-Public Use
  Company Number: US-PFIZER INC-2005002089

PATIENT
  Sex: Male
  Weight: 56.7 kg

DRUGS (8)
  1. XANAX [Suspect]
     Indication: ANXIETY
     Route: 048
  2. XANAX [Suspect]
     Indication: DEPRESSION
  3. AMBIEN [Concomitant]
     Route: 048
  4. LONOX [Concomitant]
     Route: 048
  5. DONNATAL [Concomitant]
     Route: 048
  6. COMPAZINE [Concomitant]
     Route: 048
  7. COMPAZINE [Concomitant]
     Route: 048
  8. DARVOCET [Concomitant]
     Route: 048

REACTIONS (8)
  - AMNESIA [None]
  - ANXIETY [None]
  - CEREBROVASCULAR ACCIDENT [None]
  - CONVULSION [None]
  - DRUG WITHDRAWAL SYNDROME [None]
  - FEELING DRUNK [None]
  - MOTOR DYSFUNCTION [None]
  - UNDERWEIGHT [None]
